FAERS Safety Report 25624239 (Version 1)
Quarter: 2025Q3

REPORT INFORMATION
  Report Type: Spontaneous
  Country: EU (occurrence: EU)
  Receive Date: 20250730
  Receipt Date: 20250730
  Transmission Date: 20251021
  Serious: Yes (Other)
  Sender: MYLAN
  Company Number: EU-MLMSERVICE-20230517-4279759-1

PATIENT
  Age: 80 Year
  Sex: Female

DRUGS (48)
  1. PAROXETINE [Suspect]
     Active Substance: PAROXETINE
     Indication: Depressive symptom
  2. PAROXETINE [Suspect]
     Active Substance: PAROXETINE
     Route: 065
  3. PAROXETINE [Suspect]
     Active Substance: PAROXETINE
     Route: 065
  4. PAROXETINE [Suspect]
     Active Substance: PAROXETINE
  5. CLOZAPINE [Suspect]
     Active Substance: CLOZAPINE
     Indication: Dementia with Lewy bodies
     Dosage: 12.5 MILLIGRAM, QD (GRADUAL INCREASE FROM 12.5 MG TO 75 MG/DAY)
  6. CLOZAPINE [Suspect]
     Active Substance: CLOZAPINE
     Dosage: 12.5 MILLIGRAM, QD (GRADUAL INCREASE FROM 12.5 MG TO 75 MG/DAY)
  7. CLOZAPINE [Suspect]
     Active Substance: CLOZAPINE
     Dosage: 12.5 MILLIGRAM, QD (GRADUAL INCREASE FROM 12.5 MG TO 75 MG/DAY)
     Route: 065
  8. CLOZAPINE [Suspect]
     Active Substance: CLOZAPINE
     Dosage: 12.5 MILLIGRAM, QD (GRADUAL INCREASE FROM 12.5 MG TO 75 MG/DAY)
     Route: 065
  9. CLOZAPINE [Suspect]
     Active Substance: CLOZAPINE
     Dosage: GRADUAL INCREASE  QD
  10. CLOZAPINE [Suspect]
     Active Substance: CLOZAPINE
     Dosage: GRADUAL INCREASE  QD
  11. CLOZAPINE [Suspect]
     Active Substance: CLOZAPINE
     Dosage: GRADUAL INCREASE  QD
     Route: 065
  12. CLOZAPINE [Suspect]
     Active Substance: CLOZAPINE
     Dosage: GRADUAL INCREASE  QD
     Route: 065
  13. CLOZAPINE [Suspect]
     Active Substance: CLOZAPINE
     Dosage: 75 MILLIGRAM, QD (GRADUAL INCREASE FROM 12.5 MG TO 75 MG/DAY)
  14. CLOZAPINE [Suspect]
     Active Substance: CLOZAPINE
     Dosage: 75 MILLIGRAM, QD (GRADUAL INCREASE FROM 12.5 MG TO 75 MG/DAY)
     Route: 065
  15. CLOZAPINE [Suspect]
     Active Substance: CLOZAPINE
     Dosage: 75 MILLIGRAM, QD (GRADUAL INCREASE FROM 12.5 MG TO 75 MG/DAY)
  16. CLOZAPINE [Suspect]
     Active Substance: CLOZAPINE
     Dosage: 75 MILLIGRAM, QD (GRADUAL INCREASE FROM 12.5 MG TO 75 MG/DAY)
     Route: 065
  17. DONEPEZIL [Concomitant]
     Active Substance: DONEPEZIL
     Indication: Dementia with Lewy bodies
     Dosage: 5 MILLIGRAM, QD
  18. DONEPEZIL [Concomitant]
     Active Substance: DONEPEZIL
     Dosage: 5 MILLIGRAM, QD
     Route: 065
  19. DONEPEZIL [Concomitant]
     Active Substance: DONEPEZIL
     Dosage: 5 MILLIGRAM, QD
     Route: 065
  20. DONEPEZIL [Concomitant]
     Active Substance: DONEPEZIL
     Dosage: 5 MILLIGRAM, QD
  21. ASPIRIN\CLOPIDOGREL [Concomitant]
     Active Substance: ASPIRIN\CLOPIDOGREL
     Indication: Product used for unknown indication
     Dosage: 1 DOSAGE FORM, QD
  22. ASPIRIN\CLOPIDOGREL [Concomitant]
     Active Substance: ASPIRIN\CLOPIDOGREL
     Dosage: 1 DOSAGE FORM, QD
     Route: 065
  23. ASPIRIN\CLOPIDOGREL [Concomitant]
     Active Substance: ASPIRIN\CLOPIDOGREL
     Dosage: 1 DOSAGE FORM, QD
     Route: 065
  24. ASPIRIN\CLOPIDOGREL [Concomitant]
     Active Substance: ASPIRIN\CLOPIDOGREL
     Dosage: 1 DOSAGE FORM, QD
  25. PROPRANOLOL [Concomitant]
     Active Substance: PROPRANOLOL HYDROCHLORIDE
     Indication: Product used for unknown indication
     Dosage: 40 MILLIGRAM, Q8H (120 MG QD, 40 MG ? 3 TIMES DAILY)
  26. PROPRANOLOL [Concomitant]
     Active Substance: PROPRANOLOL HYDROCHLORIDE
     Dosage: 40 MILLIGRAM, Q8H (120 MG QD, 40 MG ? 3 TIMES DAILY)
     Route: 065
  27. PROPRANOLOL [Concomitant]
     Active Substance: PROPRANOLOL HYDROCHLORIDE
     Dosage: 40 MILLIGRAM, Q8H (120 MG QD, 40 MG ? 3 TIMES DAILY)
     Route: 065
  28. PROPRANOLOL [Concomitant]
     Active Substance: PROPRANOLOL HYDROCHLORIDE
     Dosage: 40 MILLIGRAM, Q8H (120 MG QD, 40 MG ? 3 TIMES DAILY)
  29. BROMAZEPAM [Concomitant]
     Active Substance: BROMAZEPAM
     Indication: Product used for unknown indication
     Dosage: 1.5 MILLIGRAM, Q6H (6 MG QD, 1.5 MG ? 4 TIMES DAILY)
  30. BROMAZEPAM [Concomitant]
     Active Substance: BROMAZEPAM
     Dosage: 1.5 MILLIGRAM, Q6H (6 MG QD, 1.5 MG ? 4 TIMES DAILY)
     Route: 065
  31. BROMAZEPAM [Concomitant]
     Active Substance: BROMAZEPAM
     Dosage: 1.5 MILLIGRAM, Q6H (6 MG QD, 1.5 MG ? 4 TIMES DAILY)
     Route: 065
  32. BROMAZEPAM [Concomitant]
     Active Substance: BROMAZEPAM
     Dosage: 1.5 MILLIGRAM, Q6H (6 MG QD, 1.5 MG ? 4 TIMES DAILY)
  33. PIMAVANSERIN [Concomitant]
     Active Substance: PIMAVANSERIN
     Indication: Product used for unknown indication
     Dosage: 34 MILLIGRAM, QD
  34. PIMAVANSERIN [Concomitant]
     Active Substance: PIMAVANSERIN
     Dosage: 34 MILLIGRAM, QD
     Route: 065
  35. PIMAVANSERIN [Concomitant]
     Active Substance: PIMAVANSERIN
     Dosage: 34 MILLIGRAM, QD
     Route: 065
  36. PIMAVANSERIN [Concomitant]
     Active Substance: PIMAVANSERIN
     Dosage: 34 MILLIGRAM, QD
  37. OXAZEPAM [Concomitant]
     Active Substance: OXAZEPAM
     Indication: Product used for unknown indication
  38. OXAZEPAM [Concomitant]
     Active Substance: OXAZEPAM
     Route: 065
  39. OXAZEPAM [Concomitant]
     Active Substance: OXAZEPAM
     Route: 065
  40. OXAZEPAM [Concomitant]
     Active Substance: OXAZEPAM
  41. NITRAZEPAM [Concomitant]
     Active Substance: NITRAZEPAM
     Indication: Product used for unknown indication
  42. NITRAZEPAM [Concomitant]
     Active Substance: NITRAZEPAM
     Route: 065
  43. NITRAZEPAM [Concomitant]
     Active Substance: NITRAZEPAM
     Route: 065
  44. NITRAZEPAM [Concomitant]
     Active Substance: NITRAZEPAM
  45. MELATONIN [Concomitant]
     Active Substance: MELATONIN
     Indication: Product used for unknown indication
     Dosage: 12 MILLIGRAM, QD (DAILY)
  46. MELATONIN [Concomitant]
     Active Substance: MELATONIN
     Dosage: 12 MILLIGRAM, QD (DAILY)
     Route: 065
  47. MELATONIN [Concomitant]
     Active Substance: MELATONIN
     Dosage: 12 MILLIGRAM, QD (DAILY)
     Route: 065
  48. MELATONIN [Concomitant]
     Active Substance: MELATONIN
     Dosage: 12 MILLIGRAM, QD (DAILY)

REACTIONS (4)
  - Drug intolerance [Recovered/Resolved]
  - Neutropenia [Recovering/Resolving]
  - Balance disorder [Recovering/Resolving]
  - Drug ineffective [Unknown]
